FAERS Safety Report 4642625-4 (Version None)
Quarter: 2005Q2

REPORT INFORMATION
  Report Type: 
  Country: None (occurrence: None)
  Receive Date: 20050420
  Receipt Date: 20050407
  Transmission Date: 20051028
  Serious: Yes (Hospitalization)
  Sender: FDA-Public Use
  Company Number: HQWYE881508APR05

PATIENT
  Age: 6 Year
  Sex: Male

DRUGS (6)
  1. CHILDREN'S ADVIL [Suspect]
     Dosage: ONE DOSE PER KILOGRAM, ORAL
     Route: 048
     Dates: start: 20050224, end: 20050224
  2. CELESTONE [Concomitant]
  3. OFLOCET (OFLOXACIN) [Concomitant]
  4. UNSPECIFIED OTIC PREPARATION (UNSPECIFIED OTIC PREPARATION) [Concomitant]
  5. AMOXICILLIN TRIHYDRATE [Concomitant]
  6. MAXILASE (AMYLASE) [Concomitant]

REACTIONS (10)
  - ANOREXIA [None]
  - ASTHENIA [None]
  - CONDITION AGGRAVATED [None]
  - DIET REFUSAL [None]
  - EAR INFECTION [None]
  - GAIT DISTURBANCE [None]
  - INFLAMMATION [None]
  - MUSCULOSKELETAL STIFFNESS [None]
  - PYREXIA [None]
  - VOMITING [None]
